FAERS Safety Report 16299344 (Version 1)
Quarter: 2019Q2

REPORT INFORMATION
  Report Type: Spontaneous
  Country: FR (occurrence: FR)
  Receive Date: 20190510
  Receipt Date: 20190510
  Transmission Date: 20190711
  Serious: Yes (Death)
  Sender: FDA-Public Use
  Company Number: FR-GLAXOSMITHKLINE-FR2019GSK083433

PATIENT
  Age: 41 Year
  Sex: Male

DRUGS (1)
  1. NICOPATCH [Suspect]
     Active Substance: NICOTINE
     Indication: PRODUCT USED FOR UNKNOWN INDICATION
     Dosage: UNK, 7 PATCHS ON BODY^S PATIENT
     Route: 062

REACTIONS (2)
  - Intentional overdose [Fatal]
  - Tobacco poisoning [Fatal]
